FAERS Safety Report 20115704 (Version 2)
Quarter: 2021Q4

REPORT INFORMATION
  Report Type: Report from Study
  Country: US (occurrence: US)
  Receive Date: 20211126
  Receipt Date: 20211129
  Transmission Date: 20220303
  Serious: Yes (Life-Threatening, Hospitalization, Other)
  Sender: FDA-Public Use
  Company Number: US-BRISTOL-MYERS SQUIBB COMPANY-BMS-2021-126359

PATIENT
  Age: 50 Year
  Sex: Male
  Weight: 90.703 kg

DRUGS (4)
  1. ABATACEPT [Suspect]
     Active Substance: ABATACEPT
     Indication: COVID-19
     Dosage: 1000 MG, ONCE
     Route: 042
     Dates: start: 20211027, end: 20211027
  2. REMDESIVIR [Suspect]
     Active Substance: REMDESIVIR
     Indication: COVID-19
     Dosage: 200 MILLIGRAM, ONCE (LOADING DOSE)
     Route: 042
     Dates: start: 20211026, end: 20211026
  3. REMDESIVIR [Suspect]
     Active Substance: REMDESIVIR
     Dosage: 100 MILLIGRAM, ONCE (MAINTENANCE DOSE
     Route: 042
     Dates: start: 20211027, end: 20211030
  4. SARILUMAB [Concomitant]
     Active Substance: SARILUMAB
     Indication: COVID-19
     Dosage: 400 MG, ONCE
     Route: 065
     Dates: start: 20211101, end: 20211101

REACTIONS (2)
  - COVID-19 [Not Recovered/Not Resolved]
  - Bacterial sepsis [Not Recovered/Not Resolved]

NARRATIVE: CASE EVENT DATE: 20211119
